FAERS Safety Report 9936803 (Version 1)
Quarter: 2014Q1

REPORT INFORMATION
  Report Type: Spontaneous
  Country: US (occurrence: None)
  Receive Date: 20140109
  Receipt Date: 20140109
  Transmission Date: 20141002
  Serious: Yes (Other)
  Sender: FDA-Public Use
  Company Number: 367974

PATIENT
  Age: 77 Year
  Sex: Female

DRUGS (2)
  1. LEVEMIR FLEXPEN (INSULIN DETEMIR) SOLUTION FOR INJECTION, .0024MOL/L [Suspect]
     Indication: TYPE 2 DIABETES MELLITUS
     Route: 058
     Dates: start: 2009
  2. GLIBENASE (GLIPIZIDE) [Concomitant]

REACTIONS (6)
  - Hypoglycaemic unconsciousness [None]
  - Shock hypoglycaemic [None]
  - Tinnitus [None]
  - Hyperhidrosis [None]
  - Urinary incontinence [None]
  - Blood glucose increased [None]
